FAERS Safety Report 24546065 (Version 3)
Quarter: 2025Q2

REPORT INFORMATION
  Report Type: Spontaneous
  Country: US (occurrence: US)
  Receive Date: 20241024
  Receipt Date: 20250403
  Transmission Date: 20250716
  Serious: No
  Sender: SUNOVION
  Company Number: US-SMPA-2024SPA004076AA

PATIENT

DRUGS (3)
  1. ORGOVYX [Suspect]
     Active Substance: RELUGOLIX
     Indication: Prostate cancer
     Dosage: 120 MG QD
     Route: 048
  2. BREZTRI [Concomitant]
     Active Substance: BUDESONIDE\FORMOTEROL\GLYCOPYRROLATE
     Indication: Chronic obstructive pulmonary disease
     Route: 065
  3. BREZTRI [Concomitant]
     Active Substance: BUDESONIDE\FORMOTEROL\GLYCOPYRROLATE
     Indication: Asthma

REACTIONS (9)
  - Chronic obstructive pulmonary disease [Unknown]
  - Feeling cold [Unknown]
  - Gouty arthritis [Unknown]
  - Vision blurred [Unknown]
  - Abnormal dreams [Unknown]
  - Feeling abnormal [Unknown]
  - Chest pain [Unknown]
  - Brain fog [Unknown]
  - Hot flush [Unknown]

NARRATIVE: CASE EVENT DATE: 20250304
